FAERS Safety Report 8594157-9 (Version None)
Quarter: 2012Q3

REPORT INFORMATION
  Report Type: 
  Country: None (occurrence: None)
  Receive Date: 20120814
  Receipt Date: 20120809
  Transmission Date: 20120928
  Serious: Yes (Other)
  Sender: FDA-Public Use
  Company Number: IN-009507513-1208IND003389

PATIENT

DRUGS (7)
  1. MECOBALAMIN [Concomitant]
     Dosage: QD
     Route: 048
     Dates: start: 20120515
  2. GLYCOMET [Concomitant]
     Dosage: 500 MG, BID
     Route: 048
     Dates: start: 20100313
  3. MET XL TABLETS [Concomitant]
     Dosage: 50 MG, QD
     Route: 048
     Dates: start: 20110711
  4. CLOPIDOGREL [Concomitant]
     Dosage: 75 MG, QD
     Route: 048
     Dates: start: 20120327
  5. PANTOP D [Concomitant]
     Dosage: UNK UNK, BID
     Route: 048
     Dates: start: 20120515
  6. NATURES BENEFIT DIABETIC MULTIVITAMIN [Concomitant]
     Dosage: UNK, ONCE
     Route: 048
     Dates: start: 20120515
  7. EZETIMIBE/SIMVASTATIN [Suspect]
     Indication: ACUTE CORONARY SYNDROME
     Dosage: 10-40 MG, QD
     Route: 048
     Dates: start: 20100317

REACTIONS (1)
  - BREAST CANCER [None]
